FAERS Safety Report 15807863 (Version 2)
Quarter: 2019Q1

REPORT INFORMATION
  Report Type: Report from Study
  Country: CA (occurrence: CA)
  Receive Date: 20190110
  Receipt Date: 20190201
  Transmission Date: 20190417
  Serious: Yes (Death)
  Sender: FDA-Public Use
  Company Number: CA-HLSUS-2019-CA-000027

PATIENT
  Age: 60 Year
  Sex: Female
  Weight: 85.28 kg

DRUGS (9)
  1. ATROVENT 0.03% [Concomitant]
     Dosage: 1 VAP TWICE DAILY
  2. APO RAMIPRIL [Concomitant]
     Active Substance: RAMIPRIL
     Dosage: 2.5 MG
     Route: 048
     Dates: start: 201811, end: 201812
  3. D-TABS [Concomitant]
     Active Substance: CHOLECALCIFEROL
     Dosage: ONCE A WEEK
     Dates: start: 20181101, end: 20181201
  4. GLUCOPHAGE [Concomitant]
     Active Substance: METFORMIN HYDROCHLORIDE
     Dosage: 500 MG, TWICE DAILY
     Dates: start: 20181101, end: 20181201
  5. ATROPISOL 1% [Concomitant]
     Dosage: TWICE DAILY
  6. CLOZARIL [Suspect]
     Active Substance: CLOZAPINE
     Indication: SCHIZOPHRENIA
     Dosage: 25 MG IN MORNING, 50 MG AT SUPPER, 450 MG AT BEDTIME
     Route: 048
     Dates: start: 20100714, end: 201709
  7. RISPERDAL [Concomitant]
     Active Substance: RISPERIDONE
     Dosage: 1 MG TABLETS, 2 TABS AT SUPPER AND 1 AT BEDTIME
     Dates: start: 20180712
  8. CRESTOR [Concomitant]
     Active Substance: ROSUVASTATIN CALCIUM
     Dosage: 10 MG 1 TAB DAILY
     Dates: start: 20181101, end: 20181201
  9. VITAMIN B12 [Concomitant]
     Active Substance: CYANOCOBALAMIN
     Dosage: 250 MCG, 2 TABLETS DAILY
     Dates: start: 20181102, end: 20181201

REACTIONS (3)
  - Death [Fatal]
  - Salivary hypersecretion [Unknown]
  - Hallucination, auditory [Unknown]

NARRATIVE: CASE EVENT DATE: 20190102
